FAERS Safety Report 8200447-1 (Version None)
Quarter: 2012Q1

REPORT INFORMATION
  Report Type: 
  Country: None (occurrence: None)
  Receive Date: 20120227
  Receipt Date: 20120216
  Transmission Date: 20120608
  Serious: Yes (Hospitalization, Other)
  Sender: FDA-Public Use
  Company Number: 2012031200

PATIENT
  Age: 79 Year
  Sex: Male
  Weight: 73.4827 kg

DRUGS (22)
  1. SINGULAIR [Concomitant]
  2. ACETAMINOPHEN [Concomitant]
  3. CALCIUM D (CALCIUM D) [Concomitant]
  4. FLUOCINONIDE [Concomitant]
  5. FISH OIL (FISH OIL) [Concomitant]
  6. ASCORBIC ACID [Concomitant]
  7. REQUIP [Concomitant]
  8. HIZENTRA [Suspect]
     Indication: IMMUNODEFICIENCY COMMON VARIABLE
     Dosage: 8 G 1X/WEEK, IN 2-3 SITES OVER 1-2 HOURS SUBCUTANEOUS)
     Route: 057
     Dates: start: 20120201
  9. HIZENTRA [Suspect]
     Indication: IMMUNODEFICIENCY COMMON VARIABLE
     Dosage: 8 G 1X/WEEK, IN 2-3 SITES OVER 1-2 HOURS SUBCUTANEOUS)
     Route: 057
     Dates: start: 20110610
  10. ASPIRIN [Concomitant]
  11. NIZORAL [Concomitant]
  12. VALIUM [Concomitant]
  13. MULTIVITAMIN (MULTIVITAMIN /00831701/) [Concomitant]
  14. SPIRIVA [Concomitant]
  15. COLCHICINE [Concomitant]
  16. LIPITOR [Concomitant]
  17. HYDROXYCHLOROQUINE SULFATE [Concomitant]
  18. PRILOSEC [Concomitant]
  19. WELCHOL [Concomitant]
  20. MUCINEX [Concomitant]
  21. FOLIC ACID [Concomitant]
  22. VENTOLIN HFA (SALBUTAMOL SULFATE) [Concomitant]

REACTIONS (1)
  - PNEUMONIA [None]
